FAERS Safety Report 13379515 (Version 1)
Quarter: 2017Q1

REPORT INFORMATION
  Report Type: Spontaneous
  Country: US (occurrence: US)
  Receive Date: 20170328
  Receipt Date: 20170328
  Transmission Date: 20170429
  Serious: Yes (Death, Hospitalization)
  Sender: FDA-Public Use
  Company Number: US-TEVA-752997USA

PATIENT
  Age: 70 Year
  Sex: Female

DRUGS (4)
  1. ALLOPURINOL. [Suspect]
     Active Substance: ALLOPURINOL
     Indication: GOUT
     Route: 065
  2. AZATHIOPRINE. [Interacting]
     Active Substance: AZATHIOPRINE
     Indication: GOUT
     Route: 065
     Dates: start: 2004
  3. TACROLIMUS. [Concomitant]
     Active Substance: TACROLIMUS
     Route: 065
     Dates: start: 2004
  4. PREDNISONE. [Concomitant]
     Active Substance: PREDNISONE
     Indication: GOUT
     Route: 065
     Dates: start: 2004

REACTIONS (6)
  - Clostridium difficile infection [Fatal]
  - Pancytopenia [Fatal]
  - Pseudomonas infection [Fatal]
  - Acute respiratory failure [Fatal]
  - Septic shock [Fatal]
  - Drug interaction [Fatal]
